FAERS Safety Report 5042492-3 (Version None)
Quarter: 2006Q2

REPORT INFORMATION
  Report Type: 
  Country: None (occurrence: None)
  Receive Date: 20060627
  Receipt Date: 20060612
  Transmission Date: 20061013
  Serious: Yes (Hospitalization, Other)
  Sender: FDA-Public Use
  Company Number: FR200603005951

PATIENT
  Age: 88 Year
  Sex: Female

DRUGS (9)
  1. FORTEO [Suspect]
     Indication: OSTEOPOROSIS
     Dosage: 20 UG, DAILY (1/D), SUBCUTANEOUS
     Route: 058
     Dates: start: 20050324
  2. FORTEO [Concomitant]
  3. BISOPROLOL FUMARATE [Concomitant]
  4. COTAREG (HYDROCHLOROTHIAZIDE, VALSARTAN) [Concomitant]
  5. EQUANIL [Concomitant]
  6. PAROXETINE HYDROCHLORIDE [Concomitant]
  7. DITROPAN [Concomitant]
  8. ACETAMINOPHEN W/ PROPOXYPHENE HCL [Concomitant]
  9. TRAMADOL HCL [Concomitant]

REACTIONS (4)
  - ANAEMIA [None]
  - FEMORAL NECK FRACTURE [None]
  - RHEUMATOID ARTHRITIS [None]
  - SYNOVITIS [None]
